FAERS Safety Report 10216568 (Version 2)
Quarter: 2014Q4

REPORT INFORMATION
  Report Type: Spontaneous
  Country: US (occurrence: US)
  Receive Date: 20140604
  Receipt Date: 20141007
  Transmission Date: 20150528
  Serious: Yes (Hospitalization, Other)
  Sender: FDA-Public Use
  Company Number: US-BAYER-2014-081313

PATIENT
  Age: 25 Year
  Sex: Female
  Weight: 58.96 kg

DRUGS (4)
  1. FLAGYL [Suspect]
     Active Substance: METRONIDAZOLE\METRONIDAZOLE HYDROCHLORIDE
     Indication: BACTERIAL VAGINOSIS
  2. DEPO-PROVERA [Concomitant]
     Active Substance: MEDROXYPROGESTERONE ACETATE
  3. PROAIR HFA [Concomitant]
     Active Substance: ALBUTEROL SULFATE
     Dosage: UNK
     Dates: start: 200008
  4. MIRENA [Suspect]
     Active Substance: LEVONORGESTREL
     Indication: CONTRACEPTION
     Dosage: 20 ?G, CONT
     Route: 015
     Dates: start: 20120509, end: 20120618

REACTIONS (12)
  - Abdominal pain [None]
  - Injury [None]
  - Medical device discomfort [None]
  - Depression [None]
  - Depressed mood [None]
  - Uterine perforation [None]
  - Genital haemorrhage [None]
  - Fear [None]
  - Pelvic pain [None]
  - Emotional distress [None]
  - Anxiety [None]
  - Internal injury [None]

NARRATIVE: CASE EVENT DATE: 20120523
